FAERS Safety Report 12086697 (Version 1)
Quarter: 2016Q1

REPORT INFORMATION
  Report Type: Spontaneous
  Country: US (occurrence: US)
  Receive Date: 20160217
  Receipt Date: 20160217
  Transmission Date: 20160526
  Serious: No
  Sender: FDA-Public Use
  Company Number: US-ALLERGAN-1502968US

PATIENT
  Sex: Male

DRUGS (1)
  1. RESTASIS [Suspect]
     Active Substance: CYCLOSPORINE
     Indication: EYE INFECTION
     Dosage: UNK
     Route: 047
     Dates: start: 201502

REACTIONS (5)
  - Eye irritation [Recovered/Resolved]
  - Eye pain [Recovered/Resolved]
  - Visual acuity reduced [Recovered/Resolved]
  - Ocular hyperaemia [Recovered/Resolved]
  - Dry eye [Not Recovered/Not Resolved]
